FAERS Safety Report 4518291-5 (Version None)
Quarter: 2004Q4

REPORT INFORMATION
  Report Type: 
  Country: None (occurrence: None)
  Receive Date: 20041130
  Receipt Date: 20041116
  Transmission Date: 20050328
  Serious: Yes (Hospitalization)
  Sender: FDA-Public Use
  Company Number: 29781

PATIENT
  Sex: Female

DRUGS (1)
  1. VIGAMOX [Suspect]
     Indication: PROPHYLAXIS

REACTIONS (1)
  - OESOPHAGEAL CANDIDIASIS [None]
